FAERS Safety Report 8093317-3 (Version None)
Quarter: 2012Q1

REPORT INFORMATION
  Report Type: 
  Country: None (occurrence: None)
  Receive Date: 20120128
  Receipt Date: 20110930
  Transmission Date: 20120608
  Serious: No
  Sender: FDA-Public Use
  Company Number: US-ABBOTT-11P-163-0848014-00

PATIENT
  Sex: Female
  Weight: 56.296 kg

DRUGS (9)
  1. LORAZEPAM [Concomitant]
     Indication: ANXIETY
  2. CYMBALTA [Concomitant]
     Indication: PAIN
  3. OPIUM TINCTURE [Concomitant]
     Indication: COLITIS
     Dates: start: 20110813
  4. HUMIRA [Suspect]
     Indication: CROHN'S DISEASE
     Dates: start: 20110615, end: 20110713
  5. LEVOTHYROXINE SODIUM [Concomitant]
     Indication: HYPOTHYROIDISM
  6. ACETAMINOPHEN [Concomitant]
     Indication: PAIN
  7. LOMOTIL [Concomitant]
     Indication: DIARRHOEA
  8. PREMARIN [Concomitant]
     Indication: HORMONE REPLACEMENT THERAPY
  9. OXYCODONE HCL [Concomitant]
     Indication: PAIN

REACTIONS (2)
  - DRUG INEFFECTIVE [None]
  - DIARRHOEA [None]
